FAERS Safety Report 21088686 (Version 5)
Quarter: 2022Q4

REPORT INFORMATION
  Report Type: Spontaneous
  Country: US (occurrence: US)
  Receive Date: 20220715
  Receipt Date: 20221020
  Transmission Date: 20230112
  Serious: No
  Sender: FDA-Public Use
  Company Number: US-PFIZER INC-PV202200023030

PATIENT
  Age: 54 Year
  Sex: Female
  Weight: 55.34 kg

DRUGS (1)
  1. PREMARIN [Suspect]
     Active Substance: ESTROGENS, CONJUGATED
     Dosage: UNK

REACTIONS (5)
  - Blood pressure abnormal [Unknown]
  - Feeling abnormal [Unknown]
  - Hypertension [Unknown]
  - Hot flush [Unknown]
  - Intentional dose omission [Unknown]
